FAERS Safety Report 7833555-5 (Version None)
Quarter: 2011Q4

REPORT INFORMATION
  Report Type: 
  Country: None (occurrence: None)
  Receive Date: 20111024
  Receipt Date: 20111020
  Transmission Date: 20120403
  Serious: Yes (Hospitalization, Other)
  Sender: FDA-Public Use
  Company Number: US-ABBOTT-11P-163-0850291-00

PATIENT
  Sex: Female
  Weight: 69.916 kg

DRUGS (9)
  1. HUMIRA [Suspect]
     Indication: PSORIASIS
  2. OMEPRAZOLE [Concomitant]
     Indication: DYSPEPSIA
  3. SOTALOL HCL [Concomitant]
     Indication: CARDIAC DISORDER
  4. PRAVASTATIN [Concomitant]
     Indication: CARDIAC DISORDER
  5. LODINE [Concomitant]
     Indication: ARTHRITIS
  6. LISINOPRIL [Concomitant]
     Indication: PRODUCT USED FOR UNKNOWN INDICATION
  7. UNNAMED WATER PILL [Concomitant]
     Indication: PRODUCT USED FOR UNKNOWN INDICATION
  8. HUMIRA [Suspect]
     Indication: PSORIATIC ARTHROPATHY
     Dates: start: 20110401
  9. IRON PILL [Concomitant]
     Indication: PRODUCT USED FOR UNKNOWN INDICATION

REACTIONS (5)
  - APHAGIA [None]
  - URINARY TRACT INFECTION [None]
  - ATRIAL FIBRILLATION [None]
  - TOOTH INFECTION [None]
  - RESPIRATORY DISORDER [None]
